FAERS Safety Report 6879726 (Version 2)
Quarter: 2013Q1

REPORT INFORMATION
  Report Type: Spontaneous
  Country: US (occurrence: None)
  Receive Date: 20090107
  Receipt Date: 20130115
  Transmission Date: 20140127
  Serious: Yes (Hospitalization, Other)
  Sender: FDA-Public Use
  Company Number: 2008AP003617

PATIENT
  Age: 35 Year
  Sex: Female

DRUGS (4)
  1. LISINOPRIL [Suspect]
     Indication: HYPERTENSION
  2. ETHINYL ESTRADIOL [Concomitant]
  3. ETONOGESTREL [Concomitant]
  4. HYDROCHLOROTHIAZIDE [Concomitant]

REACTIONS (6)
  - Angioedema [None]
  - Mouth injury [None]
  - Bite [None]
  - Body temperature decreased [None]
  - Blood pressure increased [None]
  - Lip oedema [None]
